FAERS Safety Report 9530208 (Version 1)
Quarter: 2013Q3

REPORT INFORMATION
  Report Type: Spontaneous
  Country: JP (occurrence: JP)
  Receive Date: 20130917
  Receipt Date: 20130917
  Transmission Date: 20140515
  Serious: Yes (Hospitalization)
  Sender: FDA-Public Use
  Company Number: JP-009507513-1309JPN003443

PATIENT
  Age: 50 Year
  Sex: Female

DRUGS (4)
  1. CLARITIN [Suspect]
     Dosage: 160 MG, QD
     Route: 048
  2. NORVASC [Suspect]
     Dosage: 190 MG, QD
     Route: 048
  3. MEILAX [Suspect]
     Dosage: 16 MG, QD
     Route: 048
  4. ALESION [Suspect]
     Dosage: 280 MG, QD
     Route: 048

REACTIONS (3)
  - Blood pressure decreased [Unknown]
  - Metabolic acidosis [Recovering/Resolving]
  - Overdose [Unknown]
